FAERS Safety Report 9520188 (Version 1)
Quarter: 2013Q3

REPORT INFORMATION
  Report Type: Spontaneous
  Country: US (occurrence: US)
  Receive Date: 20130912
  Receipt Date: 20130912
  Transmission Date: 20140515
  Serious: No
  Sender: FDA-Public Use
  Company Number: US-MUTUAL PHARMACEUTICAL COMPANY, INC.-BCTM20120082

PATIENT
  Sex: Male

DRUGS (1)
  1. BACTRIM DS (SULFAMETHOXAZOLE/TRIMETHOPRIM) [Suspect]
     Indication: BRONCHITIS
     Route: 065

REACTIONS (1)
  - Drug ineffective [Unknown]
